FAERS Safety Report 9032683 (Version 1)
Quarter: 2013Q1

REPORT INFORMATION
  Report Type: Report from Study
  Country: US (occurrence: US)
  Receive Date: 20130127
  Receipt Date: 20130127
  Transmission Date: 20140127
  Serious: Yes (Other)
  Sender: FDA-Public Use
  Company Number: US-US-EMD SERONO, INC.-7189109

PATIENT
  Age: 54 Year
  Sex: Female

DRUGS (5)
  1. REBIF [Suspect]
     Indication: MULTIPLE SCLEROSIS
     Route: 058
     Dates: start: 20081017
  2. SYNTHROID [Concomitant]
     Indication: HYPOTHYROIDISM
     Dates: start: 1988
  3. ZOLOFT [Concomitant]
     Indication: DEPRESSION
     Dates: start: 1997
  4. ZOLOFT [Concomitant]
     Indication: ANXIETY
  5. GLAUCOMA EYE DROPS [Concomitant]
     Indication: GLAUCOMA
     Route: 031

REACTIONS (2)
  - Loss of consciousness [Recovering/Resolving]
  - Vertigo [Recovering/Resolving]
